FAERS Safety Report 8653000 (Version 4)
Quarter: 2013Q4

REPORT INFORMATION
  Report Type: Spontaneous
  Country: US (occurrence: US)
  Receive Date: 20120706
  Receipt Date: 20131011
  Transmission Date: 20140711
  Serious: No
  Sender: FDA-Public Use
  Company Number: US-PFIZER INC-2012158686

PATIENT
  Age: 72 Year
  Sex: Female
  Weight: 68.48 kg

DRUGS (6)
  1. GLUCOTROL XL [Suspect]
     Indication: TYPE 2 DIABETES MELLITUS
     Dosage: 10 MG, 2X/DAY
     Route: 048
  2. GLUCOTROL XL [Suspect]
     Dosage: 10 MG, UNK
  3. COREG [Concomitant]
     Indication: HYPERTENSION
     Dosage: UNK
  4. LASIX [Concomitant]
     Dosage: 20 MG, UNK
  5. DIOVANE [Concomitant]
     Dosage: UNK
  6. HYPHED [Concomitant]
     Indication: HYPERSENSITIVITY
     Dosage: UNK

REACTIONS (6)
  - Suspected counterfeit product [Unknown]
  - Nausea [Unknown]
  - Flatulence [Unknown]
  - Malaise [Unknown]
  - Headache [Unknown]
  - Feeling abnormal [Unknown]
